FAERS Safety Report 7880381-7 (Version None)
Quarter: 2011Q4

REPORT INFORMATION
  Report Type: 
  Country: None (occurrence: None)
  Receive Date: 20111101
  Receipt Date: 20111031
  Transmission Date: 20120403
  Serious: Yes (Other)
  Sender: FDA-Public Use
  Company Number: US-CEPHALON-2011005599

PATIENT
  Sex: Male

DRUGS (1)
  1. FENTORA [Suspect]
     Route: 042

REACTIONS (1)
  - DRUG ABUSE [None]
